FAERS Safety Report 4524771-9 (Version None)
Quarter: 2004Q4

REPORT INFORMATION
  Report Type: 
  Country: None (occurrence: None)
  Receive Date: 20041208
  Receipt Date: 20041122
  Transmission Date: 20050328
  Serious: Yes (Other)
  Sender: FDA-Public Use
  Company Number: 2004-ES-00230ES

PATIENT
  Age: 67 Year
  Sex: Female

DRUGS (5)
  1. ATROVENT [Suspect]
     Indication: CHRONIC OBSTRUCTIVE AIRWAYS DISEASE
     Dosage: (20 MCG, 3 IH/6H) ,IH ; ONCE
     Route: 055
     Dates: start: 20040901
  2. SALMETEROL (SALMETEROL) (AE) [Concomitant]
  3. FLUTICASONE (FLUTICASONE) (AE) [Concomitant]
  4. SEGURIL (FUROSEMIDE) (TA) [Concomitant]
  5. ALDACTONE [Concomitant]

REACTIONS (3)
  - BRONCHOSPASM [None]
  - LARYNGEAL OEDEMA [None]
  - URTICARIA GENERALISED [None]
